FAERS Safety Report 4628036-6 (Version None)
Quarter: 2005Q2

REPORT INFORMATION
  Report Type: 
  Country: None (occurrence: None)
  Receive Date: 20050406
  Receipt Date: 20041022
  Transmission Date: 20051028
  Serious: Yes (Life-Threatening)
  Sender: FDA-Public Use
  Company Number: JP-MERCK-0410USA03913

PATIENT
  Age: 68 Year
  Sex: Female

DRUGS (11)
  1. PEPCID [Suspect]
     Indication: GASTRIC ULCER
     Route: 048
     Dates: start: 20041006, end: 20041013
  2. ARTIST [Concomitant]
     Route: 048
     Dates: end: 20041015
  3. PREDONINE [Concomitant]
     Indication: ARTHRALGIA
     Route: 048
     Dates: end: 20041014
  4. DIOVAN [Concomitant]
     Route: 048
     Dates: end: 20041021
  5. AZULENE SULFONATE SODIUM [Concomitant]
     Route: 048
     Dates: end: 20041013
  6. ALINAMIN [Suspect]
     Route: 048
     Dates: end: 20041013
  7. PRAVASTATIN SODIUM [Suspect]
     Route: 065
     Dates: end: 20041013
  8. ALOSITOL [Suspect]
     Route: 065
     Dates: end: 20041012
  9. EPADEL [Suspect]
     Route: 065
     Dates: end: 20041012
  10. LOXONIN [Suspect]
     Route: 065
     Dates: end: 20041012
  11. SELBEX [Suspect]
     Route: 065
     Dates: end: 20041012

REACTIONS (6)
  - ACQUIRED HAEMOPHILIA [None]
  - ACTIVATED PARTIAL THROMBOPLASTIN TIME PROLONGED [None]
  - ARTHRALGIA [None]
  - DUODENAL ULCER [None]
  - FACTOR VIII DEFICIENCY [None]
  - HAEMORRHAGE [None]
